FAERS Safety Report 24124489 (Version 1)
Quarter: 2024Q3

REPORT INFORMATION
  Report Type: Spontaneous
  Country: US (occurrence: US)
  Receive Date: 20240723
  Receipt Date: 20240723
  Transmission Date: 20241017
  Serious: Yes (Other)
  Sender: CHEPLAPHARM
  Company Number: US-CHEPLA-2024009059

PATIENT
  Age: 26 Year
  Sex: Male

DRUGS (4)
  1. CLONAZEPAM [Suspect]
     Active Substance: CLONAZEPAM
  2. CANNABIDIOL [Suspect]
     Active Substance: CANNABIDIOL
     Indication: Anxiety
     Dosage: OIL DROPS
  3. CANNABIDIOL [Suspect]
     Active Substance: CANNABIDIOL
     Indication: Insomnia
     Dosage: OIL DROPS
  4. LISDEXAMFETAMINE [Concomitant]
     Active Substance: LISDEXAMFETAMINE
     Indication: Attention deficit hyperactivity disorder
     Dosage: DAILY DOSE: 300 MILLIGRAM

REACTIONS (7)
  - Brugada syndrome [Recovering/Resolving]
  - Primary adrenal insufficiency [Unknown]
  - Hyponatraemia [Unknown]
  - Hypochloraemia [Unknown]
  - Hyperkalaemia [Unknown]
  - Acute kidney injury [Unknown]
  - Rhabdomyolysis [Unknown]
